FAERS Safety Report 13331133 (Version 1)
Quarter: 2017Q1

REPORT INFORMATION
  Report Type: Spontaneous
  Country: US (occurrence: US)
  Receive Date: 20170313
  Receipt Date: 20170313
  Transmission Date: 20170428
  Serious: Yes (Disabling, Other)
  Sender: FDA-Public Use
  Company Number: None

PATIENT
  Age: 52 Year
  Sex: Female
  Weight: 54 kg

DRUGS (14)
  1. TOPIRAMATE. [Suspect]
     Active Substance: TOPIRAMATE
     Indication: MIGRAINE PROPHYLAXIS
     Dosage: ?          QUANTITY:3 TABLET(S);OTHER FREQUENCY:1 AM, 2 PM;?
     Route: 048
     Dates: start: 20150515, end: 20170130
  2. PROGESTERONE. [Concomitant]
     Active Substance: PROGESTERONE
  3. ESTRADIOL. [Concomitant]
     Active Substance: ESTRADIOL
  4. CRANBERRY EXTRACT [Concomitant]
     Active Substance: CRANBERRY JUICE
  5. NAPROXEN SODIUM. [Concomitant]
     Active Substance: NAPROXEN SODIUM
  6. ALBUTEROL INHALER [Concomitant]
     Active Substance: ALBUTEROL
  7. AMITRIPTYLINE [Concomitant]
     Active Substance: AMITRIPTYLINE
  8. DUOLOXETINE (CYMBALTA) [Concomitant]
  9. RANITIDINE. [Concomitant]
     Active Substance: RANITIDINE
  10. WOMEN^S MULTI-VITAMIN [Concomitant]
  11. LEVOTHYROXINE. [Concomitant]
     Active Substance: LEVOTHYROXINE
  12. FLEXERIL [Concomitant]
     Active Substance: CYCLOBENZAPRINE HYDROCHLORIDE
  13. ALLEGRA [Concomitant]
     Active Substance: FEXOFENADINE HYDROCHLORIDE
  14. SENNA-S [Concomitant]
     Active Substance: DOCUSATE SODIUM\SENNOSIDES

REACTIONS (7)
  - Memory impairment [None]
  - Suicidal ideation [None]
  - Feeling abnormal [None]
  - Impaired work ability [None]
  - Nausea [None]
  - Fatigue [None]
  - Depression [None]

NARRATIVE: CASE EVENT DATE: 20161201
